FAERS Safety Report 4378088-6 (Version None)
Quarter: 2004Q2

REPORT INFORMATION
  Report Type: 
  Country: None (occurrence: None)
  Receive Date: 20040609
  Receipt Date: 20040527
  Transmission Date: 20050107
  Serious: Yes (Hospitalization)
  Sender: FDA-Public Use
  Company Number: 200410287BYL

PATIENT
  Age: 78 Year
  Sex: Female

DRUGS (5)
  1. ASPIRIN [Suspect]
     Dosage: 100 MG, TOTAL DAILY, ORAL
     Route: 048
     Dates: end: 20040407
  2. ASPIRIN [Suspect]
     Dosage: 100 MG, TOTAL DAILY, ORAL
     Route: 048
     Dates: start: 20040427, end: 20040513
  3. TAKEPRON [Concomitant]
  4. ALDACTONE-A [Concomitant]
  5. LAC B [Concomitant]

REACTIONS (1)
  - NEUTROPENIA [None]
